FAERS Safety Report 24397273 (Version 1)
Quarter: 2024Q4

REPORT INFORMATION
  Report Type: Other
  Country: US (occurrence: US)
  Receive Date: 20241004
  Receipt Date: 20241004
  Transmission Date: 20250115
  Serious: Yes (Death)
  Sender: ACI HEALTHCARE
  Company Number: US-ACI HealthCare Limited-2162475

PATIENT
  Age: 85 Year

DRUGS (4)
  1. DONEPEZIL HYDROCHLORIDE [Suspect]
     Active Substance: DONEPEZIL HYDROCHLORIDE
     Indication: Product used for unknown indication
  2. FLUOXETINE [Concomitant]
     Active Substance: FLUOXETINE HYDROCHLORIDE
  3. MEMANTINE [Concomitant]
     Active Substance: MEMANTINE
  4. SEPROXETINE [Concomitant]
     Active Substance: SEPROXETINE

REACTIONS (5)
  - Urinary tract infection [Fatal]
  - Overdose [Unknown]
  - Toxicity to various agents [Fatal]
  - Arteriosclerosis [Fatal]
  - Hypertension [Fatal]
